FAERS Safety Report 6346273-X (Version None)
Quarter: 2009Q3

REPORT INFORMATION
  Report Type: 
  Country: None (occurrence: None)
  Receive Date: 20090909
  Receipt Date: 20090901
  Transmission Date: 20100115
  Serious: Yes (Hospitalization)
  Sender: FDA-Public Use
  Company Number: PHEH2009US10167

PATIENT
  Sex: Female

DRUGS (2)
  1. RECLAST [Suspect]
     Dosage: UNK
     Dates: start: 20090826, end: 20090826
  2. MORPHINE [Concomitant]
     Indication: PAIN
     Dosage: UNK, UNK

REACTIONS (7)
  - ARTHRALGIA [None]
  - CHEST PAIN [None]
  - DYSPNOEA [None]
  - PAIN IN JAW [None]
  - PROCEDURAL HEADACHE [None]
  - PYREXIA [None]
  - URINARY RETENTION [None]
